FAERS Safety Report 12571652 (Version 1)
Quarter: 2016Q3

REPORT INFORMATION
  Report Type: Other
  Country: US (occurrence: US)
  Receive Date: 20160719
  Receipt Date: 20160719
  Transmission Date: 20161109
  Serious: Yes (Hospitalization, Other)
  Sender: FDA-Public Use
  Company Number: US-ACORDA-ACO_115038_2015

PATIENT
  Sex: Female
  Weight: 63.49 kg

DRUGS (3)
  1. AMPYRA [Suspect]
     Active Substance: DALFAMPRIDINE
     Dosage: 10 MG, BID
     Route: 048
  2. AMPYRA [Suspect]
     Active Substance: DALFAMPRIDINE
     Indication: GAIT DISTURBANCE
     Dosage: 10 MG, BID
     Route: 048
  3. AMPYRA [Suspect]
     Active Substance: DALFAMPRIDINE
     Dosage: 10 MG, BID
     Route: 048

REACTIONS (7)
  - Abasia [Recovering/Resolving]
  - Urinary tract infection [Recovering/Resolving]
  - Abasia [Recovered/Resolved]
  - Therapy cessation [Recovered/Resolved]
  - Decreased appetite [Recovering/Resolving]
  - Blood glucose increased [Recovering/Resolving]
  - Blood pressure decreased [Recovering/Resolving]
